FAERS Safety Report 8673889 (Version 2)
Quarter: 2012Q4

REPORT INFORMATION
  Report Type: 
  Country: DK (occurrence: FR)
  Receive Date: 20120719
  Receipt Date: 20120912
  Transmission Date: 20130627
  Serious: No
  Sender: FDA-Public Use
  Company Number: FR-FRI-1000037215

PATIENT
  Sex: Female
  Weight: 45 kg

DRUGS (3)
  1. ESCITALOPRAM [Suspect]
     Indication: DEPRESSION
     Dosage: 10 mg
     Route: 048
     Dates: start: 20111212, end: 20120203
  2. ESCITALOPRAM [Suspect]
     Dosage: 5 mg
     Route: 048
     Dates: start: 20120204
  3. VARNOLINE [Concomitant]
     Indication: ORAL CONTRACEPTION
     Dosage: 1 DF
     Route: 048
     Dates: start: 20101102, end: 20111015

REACTIONS (3)
  - Metrorrhagia [Recovering/Resolving]
  - Menorrhagia [Recovered/Resolved]
  - Haematoma [Recovered/Resolved]
